FAERS Safety Report 10644746 (Version 1)
Quarter: 2014Q4

REPORT INFORMATION
  Report Type: Spontaneous
  Country: US (occurrence: US)
  Receive Date: 20141211
  Receipt Date: 20141211
  Transmission Date: 20150529
  Serious: Yes (Death, Other)
  Sender: FDA-Public Use
  Company Number: US-009507513-1412USA003290

PATIENT
  Age: 40 Year
  Sex: Male

DRUGS (1)
  1. PROPECIA [Suspect]
     Active Substance: FINASTERIDE
     Route: 048

REACTIONS (2)
  - Completed suicide [Fatal]
  - Quality of life decreased [Unknown]

NARRATIVE: CASE EVENT DATE: 20130305
